FAERS Safety Report 8217594-0 (Version None)
Quarter: 2012Q1

REPORT INFORMATION
  Report Type: 
  Country: None (occurrence: None)
  Receive Date: 20120319
  Receipt Date: 20120319
  Transmission Date: 20120608
  Serious: Yes (Other)
  Sender: FDA-Public Use
  Company Number: None

PATIENT
  Sex: Female
  Weight: 74.842 kg

DRUGS (1)
  1. RESTASIS [Suspect]
     Indication: DRY EYE
     Dosage: 1 DROP
     Route: 047
     Dates: start: 20120103, end: 20120118

REACTIONS (5)
  - ERYTHEMA OF EYELID [None]
  - RASH [None]
  - EYE PRURITUS [None]
  - OCULAR HYPERAEMIA [None]
  - OCULAR DISCOMFORT [None]
